FAERS Safety Report 16554949 (Version 6)
Quarter: 2019Q4

REPORT INFORMATION
  Report Type: Report from Study
  Country: US (occurrence: US)
  Receive Date: 20190710
  Receipt Date: 20191107
  Transmission Date: 20200122
  Serious: Yes (Other)
  Sender: FDA-Public Use
  Company Number: US-PFIZER INC-2019211793

PATIENT
  Age: 63 Year
  Sex: Female

DRUGS (4)
  1. IBRANCE [Suspect]
     Active Substance: PALBOCICLIB
     Dosage: 125 MG, CYCLIC(125MG EVERY OTHER DAY FOR 21 DAYS OF 28 DAY CYCLE)
     Route: 048
     Dates: start: 20190609, end: 2019
  2. IBRANCE [Suspect]
     Active Substance: PALBOCICLIB
     Dosage: 100 MG, DAILY FOR 21 DAYS OF 28 DAY CYCLE
     Route: 048
     Dates: start: 2019, end: 20191004
  3. IBRANCE [Suspect]
     Active Substance: PALBOCICLIB
     Indication: BREAST CANCER FEMALE
     Dosage: 125 MG, CYCLIC (DAILY FOR 21 DAYS OF 28 DAY CYCLE)
     Route: 048
     Dates: start: 20190512, end: 2019
  4. IBRANCE [Suspect]
     Active Substance: PALBOCICLIB
     Dosage: 100 MG, CYCLIC(EVERY OTHER DAY FOR 21 DAYS OF 28 DAY CYCLE,DAILY FOR 21 DAYS OF 28 DAY CYCLE)
     Route: 048
     Dates: start: 20190707, end: 2019

REACTIONS (6)
  - Leukopenia [Unknown]
  - Taste disorder [Recovering/Resolving]
  - Diarrhoea [Unknown]
  - Bone marrow failure [Recovered/Resolved]
  - Fatigue [Not Recovered/Not Resolved]
  - Nausea [Recovering/Resolving]

NARRATIVE: CASE EVENT DATE: 2019
